FAERS Safety Report 10186775 (Version 1)
Quarter: 2014Q2

REPORT INFORMATION
  Report Type: Spontaneous
  Country: IT (occurrence: IT)
  Receive Date: 20140521
  Receipt Date: 20140521
  Transmission Date: 20141212
  Serious: Yes (Other)
  Sender: FDA-Public Use
  Company Number: PHHY2014IT060784

PATIENT
  Age: 68 Year
  Sex: Female

DRUGS (4)
  1. AFINITOR [Suspect]
     Indication: BREAST CANCER METASTATIC
     Dosage: 10 MG, DAILY
     Dates: start: 20140415, end: 20140423
  2. AFINITOR [Suspect]
     Dosage: 5 MG, DAILY
  3. ANTIMYCOTIC [Concomitant]
     Route: 048
  4. ANTISEPTIC [Concomitant]

REACTIONS (6)
  - Nail dystrophy [Recovering/Resolving]
  - Fatigue [Recovering/Resolving]
  - Stomatitis [Recovering/Resolving]
  - Mucosal inflammation [Recovering/Resolving]
  - Dyspnoea [Recovering/Resolving]
  - Hypercholesterolaemia [Recovering/Resolving]
